FAERS Safety Report 4337900-7 (Version None)
Quarter: 2004Q1

REPORT INFORMATION
  Report Type: 
  Country: None (occurrence: None)
  Receive Date: 20040329
  Receipt Date: 20040127
  Transmission Date: 20041129
  Serious: No
  Sender: FDA-Public Use
  Company Number: USA040157761

PATIENT
  Age: 21 Year
  Sex: Male
  Weight: 67 kg

DRUGS (1)
  1. STRATTERA [Suspect]
     Indication: ATTENTION DEFICIT/HYPERACTIVITY DISORDER
     Dosage: 25 MG/DAY
     Dates: start: 20040123, end: 20040125

REACTIONS (7)
  - ABNORMAL DREAMS [None]
  - AGGRESSION [None]
  - ANGER [None]
  - HOMICIDAL IDEATION [None]
  - INITIAL INSOMNIA [None]
  - MOOD SWINGS [None]
  - PARANOIA [None]
